FAERS Safety Report 16071251 (Version 5)
Quarter: 2019Q2

REPORT INFORMATION
  Report Type: Spontaneous
  Country: US (occurrence: US)
  Receive Date: 20190314
  Receipt Date: 20190530
  Transmission Date: 20190711
  Serious: No
  Sender: FDA-Public Use
  Company Number: US-PFIZER INC-2019102931

PATIENT
  Age: 58 Year
  Sex: Female
  Weight: 53 kg

DRUGS (2)
  1. ESTRING [Suspect]
     Active Substance: ESTRADIOL
     Indication: HORMONE REPLACEMENT THERAPY
     Dosage: UNK
     Dates: start: 201902
  2. ESTRING [Suspect]
     Active Substance: ESTRADIOL
     Dosage: 2 MG, MONTHLY
     Route: 067
     Dates: end: 20190303

REACTIONS (9)
  - Vulvovaginal mycotic infection [Recovered/Resolved]
  - Genito-pelvic pain/penetration disorder [Recovered/Resolved]
  - Malaise [Recovered/Resolved]
  - Vaginal discharge [Recovered/Resolved]
  - Bladder discomfort [Recovered/Resolved]
  - Incorrect product administration duration [Unknown]
  - Pain [Recovered/Resolved]
  - Abdominal tenderness [Recovered/Resolved]
  - Vulvovaginal pain [Recovered/Resolved]

NARRATIVE: CASE EVENT DATE: 201902
